APPROVED DRUG PRODUCT: METHOTREXATE SODIUM
Active Ingredient: METHOTREXATE SODIUM
Strength: EQ 250MG BASE/10ML (EQ 25MG BASE/ML)
Dosage Form/Route: INJECTABLE;INJECTION
Application: A040263 | Product #002
Applicant: FRESENIUS KABI USA LLC
Approved: Feb 26, 1999 | RLD: No | RS: No | Type: DISCN